FAERS Safety Report 4706158-9 (Version None)
Quarter: 2005Q2

REPORT INFORMATION
  Report Type: 
  Country: None (occurrence: None)
  Receive Date: 20050204
  Receipt Date: 20050204
  Transmission Date: 20051028
  Serious: No
  Sender: FDA-Public Use
  Company Number: None

PATIENT
  Age: 80 Year
  Sex: Female

DRUGS (2)
  1. ENALAPRIL 20MG (PAR) [Suspect]
     Indication: CARDIAC FAILURE CONGESTIVE
     Dosage: 20 MG PO BID
     Route: 048
  2. ENALAPRIL 20MG (PAR) [Suspect]
     Indication: HYPERTENSION
     Dosage: 20 MG PO BID
     Route: 048

REACTIONS (2)
  - SHOULDER PAIN [None]
  - THERAPEUTIC RESPONSE UNEXPECTED WITH DRUG SUBSTITUTION [None]
